FAERS Safety Report 9701109 (Version 2)
Quarter: 2014Q1

REPORT INFORMATION
  Report Type: Spontaneous
  Country: US (occurrence: US)
  Receive Date: 20131121
  Receipt Date: 20140318
  Transmission Date: 20141002
  Serious: Yes (Hospitalization, Other)
  Sender: FDA-Public Use
  Company Number: US-BAXTER-2013BAX045556

PATIENT
  Sex: Female

DRUGS (3)
  1. DIANEAL LOW CALCIUM (ULTRABAG) [Suspect]
     Indication: RENAL FAILURE CHRONIC
     Dosage: 4 CYCLES TOTAL
     Route: 033
     Dates: start: 201310
  2. DIANEAL LOW CALCIUM (ULTRABAG) [Suspect]
     Indication: RENAL FAILURE CHRONIC
     Dosage: 4 CYCLES TOTAL
     Route: 033
     Dates: start: 201310
  3. DIANEAL LOW CALCIUM (ULTRABAG) [Suspect]
     Indication: RENAL FAILURE CHRONIC
     Route: 033
     Dates: start: 2013

REACTIONS (3)
  - Umbilical hernia [Recovering/Resolving]
  - Hernia [Recovering/Resolving]
  - Fluid overload [Recovered/Resolved]
